FAERS Safety Report 23422683 (Version 2)
Quarter: 2024Q2

REPORT INFORMATION
  Report Type: Spontaneous
  Country: DE (occurrence: DE)
  Receive Date: 20240119
  Receipt Date: 20240603
  Transmission Date: 20240716
  Serious: Yes (Other)
  Sender: FDA-Public Use
  Company Number: DE-002147023-NVSC2024DE010378

PATIENT
  Age: 37 Year
  Sex: Female

DRUGS (1)
  1. KESIMPTA [Suspect]
     Active Substance: OFATUMUMAB
     Indication: Multiple sclerosis
     Dosage: UNK UNK, QMO
     Route: 065
     Dates: start: 202302, end: 202401

REACTIONS (5)
  - Lymphopenia [Recovered/Resolved]
  - T-lymphocyte count decreased [Recovered/Resolved]
  - CD4 lymphocytes decreased [Recovered/Resolved]
  - CD19 lymphocytes decreased [Recovered/Resolved]
  - B-lymphocyte count decreased [Recovered/Resolved]
